FAERS Safety Report 17172169 (Version 3)
Quarter: 2020Q2

REPORT INFORMATION
  Report Type: Spontaneous
  Country: FR (occurrence: FR)
  Receive Date: 20191219
  Receipt Date: 20200528
  Transmission Date: 20200713
  Serious: Yes (Other)
  Sender: FDA-Public Use
  Company Number: NVSC2019FR072397

PATIENT
  Age: 67 Year
  Sex: Male

DRUGS (4)
  1. MYCOPHENOLATE MOFETIL. [Suspect]
     Active Substance: MYCOPHENOLATE MOFETIL
     Indication: PEMPHIGUS
     Dosage: UNK
     Route: 065
  2. RITUXIMAB. [Suspect]
     Active Substance: RITUXIMAB
     Indication: PEMPHIGUS
     Dosage: 1 G, CYCLIC (DAY 0 AND DAY 15)
     Route: 065
  3. RITUXIMAB. [Suspect]
     Active Substance: RITUXIMAB
     Dosage: DAY 0 AND DAY 15 FOLLOWED BY MAINTENANCE REGIMEN OF 1 G OF RITUXIMAB EVERY 6 MONTHS FOR 18 MONTHS.
     Route: 065
  4. RITUXIMAB. [Suspect]
     Active Substance: RITUXIMAB
     Dosage: 1 G, CYCLIC (MAINTENANCE REGIMEN, EVERY 6 MONTHS FOR 18 MONTHS)
     Route: 065

REACTIONS (6)
  - Disease recurrence [Recovering/Resolving]
  - Blister [Unknown]
  - Product use in unapproved indication [Unknown]
  - Herpes zoster [Recovering/Resolving]
  - Varicella zoster virus infection [Recovering/Resolving]
  - Condition aggravated [Recovering/Resolving]
